FAERS Safety Report 15584905 (Version 1)
Quarter: 2018Q4

REPORT INFORMATION
  Report Type: Spontaneous
  Country: US (occurrence: US)
  Receive Date: 20181105
  Receipt Date: 20181105
  Transmission Date: 20190205
  Serious: Yes (Hospitalization, Disabling)
  Sender: FDA-Public Use
  Company Number: None

PATIENT
  Age: 50 Year
  Sex: Female
  Weight: 66.22 kg

DRUGS (1)
  1. MIRENA [Suspect]
     Active Substance: LEVONORGESTREL

REACTIONS (5)
  - Heart rate increased [None]
  - Chest pain [None]
  - Dyspnoea [None]
  - Cardiac stress test abnormal [None]
  - Blood pressure increased [None]

NARRATIVE: CASE EVENT DATE: 20180215
